FAERS Safety Report 9725736 (Version 1)
Quarter: 2013Q4

REPORT INFORMATION
  Report Type: Spontaneous
  Country: US (occurrence: None)
  Receive Date: 20131202
  Receipt Date: 20131202
  Transmission Date: 20140711
  Serious: Yes (Other)
  Sender: FDA-Public Use
  Company Number: None

PATIENT
  Age: 49 Year
  Sex: Male
  Weight: 79.83 kg

DRUGS (9)
  1. OMEPRAZOLE [Suspect]
     Indication: GASTROOESOPHAGEAL REFLUX DISEASE
     Route: 048
     Dates: start: 20131115, end: 20131118
  2. BENICAR [Concomitant]
  3. TRILIPIX [Concomitant]
  4. ZOLOFT [Concomitant]
  5. ATIVAN [Concomitant]
  6. NIASPAN [Concomitant]
  7. LOVAZA [Concomitant]
  8. MULTIVITAMIN [Concomitant]
  9. VIT D [Concomitant]

REACTIONS (3)
  - Dyspepsia [None]
  - Drug ineffective [None]
  - Product substitution issue [None]
